FAERS Safety Report 7815963-1 (Version None)
Quarter: 2011Q4

REPORT INFORMATION
  Report Type: 
  Country: None (occurrence: None)
  Receive Date: 20111014
  Receipt Date: 20111012
  Transmission Date: 20120403
  Serious: Yes (Other)
  Sender: FDA-Public Use
  Company Number: DE-MERCK-1109DEU00097

PATIENT
  Age: 17 Month
  Sex: Male
  Weight: 7 kg

DRUGS (12)
  1. CANCIDAS [Suspect]
     Route: 042
     Dates: start: 20110923
  2. CLONAZEPAM [Concomitant]
     Indication: EPILEPSY
     Route: 065
  3. SACCHAROMYCES BOULARDII [Concomitant]
     Route: 065
  4. CANCIDAS [Suspect]
     Indication: CANDIDIASIS
     Route: 042
     Dates: start: 20110922, end: 20110922
  5. HEPARIN [Concomitant]
     Route: 058
     Dates: start: 20110830
  6. VALPROATE SODIUM [Concomitant]
     Indication: EPILEPSY
     Route: 065
  7. TOPIRAMATE [Concomitant]
     Indication: EPILEPSY
     Route: 065
  8. VANCOMYCIN [Concomitant]
     Route: 065
  9. CANCIDAS [Suspect]
     Indication: SEPSIS
     Route: 042
     Dates: start: 20110922, end: 20110922
  10. CANCIDAS [Suspect]
     Route: 042
     Dates: start: 20110923
  11. POLYETHYLENE GLYCOL 3350 AND POTASSIUM CHLORIDE AND SODIUM BICARBONATE [Concomitant]
     Route: 048
  12. MEROPENEM [Concomitant]
     Route: 065

REACTIONS (3)
  - CHOLESTASIS [None]
  - DEVICE RELATED INFECTION [None]
  - GAMMA-GLUTAMYLTRANSFERASE INCREASED [None]
